FAERS Safety Report 4800829-1 (Version None)
Quarter: 2005Q4

REPORT INFORMATION
  Report Type: 
  Country: None (occurrence: None)
  Receive Date: 20051011
  Receipt Date: 20050926
  Transmission Date: 20060501
  Serious: Yes (Hospitalization)
  Sender: FDA-Public Use
  Company Number: S05-AUT-03578-01

PATIENT
  Age: 30 Year
  Sex: Male
  Weight: 87 kg

DRUGS (4)
  1. CIPRALEX (ESCITALOPRAM) [Suspect]
     Indication: PANIC DISORDER
     Dosage: 10 MG PO
     Route: 048
  2. PASSELYT DROPS [Suspect]
     Indication: PANIC DISORDER
     Dosage: DROPS
  3. ACETYLSALICYLIC ACID SRT [Suspect]
  4. ANTIHYTERTONE [Suspect]
     Indication: HYPERTONIA

REACTIONS (5)
  - DYSKINESIA [None]
  - EPILEPSY [None]
  - LOSS OF CONSCIOUSNESS [None]
  - MALAISE [None]
  - SHOCK [None]
